FAERS Safety Report 5609834-9 (Version None)
Quarter: 2008Q1

REPORT INFORMATION
  Report Type: 
  Country: None (occurrence: None)
  Receive Date: 20080131
  Receipt Date: 20071002
  Transmission Date: 20080703
  Serious: No
  Sender: FDA-Public Use
  Company Number: US-BAYER-200713638BWH

PATIENT
  Age: 58 Year
  Sex: Male
  Weight: 81 kg

DRUGS (15)
  1. NEXAVAR [Suspect]
     Indication: HEPATIC NEOPLASM MALIGNANT
     Dosage: TOTAL DAILY DOSE: 800 MG  UNIT DOSE: 200 MG
     Route: 048
     Dates: start: 20070921, end: 20071001
  2. PREDNISONE TAB [Concomitant]
     Indication: LIVER TRANSPLANT
     Dosage: UNIT DOSE: 5 MG
  3. PROGRAF [Concomitant]
     Indication: LIVER TRANSPLANT
  4. HEPATITIS B IMMUNE GLOBULIN (HUMAN) [Concomitant]
     Indication: LIVER TRANSPLANT
  5. HEPSERA [Concomitant]
     Indication: LIVER TRANSPLANT
  6. GANCICLOVIR [Concomitant]
     Indication: LIVER TRANSPLANT
  7. NYSTATIN [Concomitant]
     Route: 048
  8. BACTRIM DS [Concomitant]
  9. NEXIUM [Concomitant]
  10. AMBIEN [Concomitant]
  11. MAGNESIUM OXIDE [Concomitant]
  12. LEXAPRO [Concomitant]
  13. NORVASC [Concomitant]
  14. INSULIN [Concomitant]
  15. ALTACE [Concomitant]

REACTIONS (3)
  - NEUROPATHY PERIPHERAL [None]
  - PAIN IN EXTREMITY [None]
  - PARAESTHESIA [None]
